FAERS Safety Report 8589385-2 (Version None)
Quarter: 2012Q3

REPORT INFORMATION
  Report Type: 
  Country: None (occurrence: None)
  Receive Date: 20120731
  Receipt Date: 20120718
  Transmission Date: 20120928
  Serious: Yes (Hospitalization)
  Sender: FDA-Public Use
  Company Number: 2012MA009103

PATIENT
  Age: 63 Year
  Sex: Female

DRUGS (3)
  1. AMITRIPTYLINE HCL [Concomitant]
  2. OMEPRAZOLE [Concomitant]
  3. DICLOFENAC SODIUM [Suspect]
     Indication: ARTHRITIS
     Dosage: 25 MG;TID;PO
     Route: 048
     Dates: start: 20090201, end: 20120101

REACTIONS (2)
  - HYPERCHLORHYDRIA [None]
  - MUSCLE SPASMS [None]
